FAERS Safety Report 15087475 (Version 3)
Quarter: 2019Q3

REPORT INFORMATION
  Report Type: Report from Study
  Country: US (occurrence: US)
  Receive Date: 20180628
  Receipt Date: 20190814
  Transmission Date: 20191004
  Serious: Yes (Hospitalization)
  Sender: FDA-Public Use
  Company Number: US-JAZZ-2018-US-007013

PATIENT
  Sex: Female

DRUGS (38)
  1. CLINDAMYCIN HYDROCHLORIDE. [Concomitant]
     Active Substance: CLINDAMYCIN HYDROCHLORIDE
  2. RELISTOR [Concomitant]
     Active Substance: METHYLNALTREXONE BROMIDE
  3. CLONIDINE HCL [Concomitant]
     Active Substance: CLONIDINE HYDROCHLORIDE
  4. ALENDRONATE SODIUM. [Concomitant]
     Active Substance: ALENDRONATE SODIUM
  5. PYRIDIUM [Concomitant]
     Active Substance: PHENAZOPYRIDINE
  6. TROSPIUM CHLORIDE. [Concomitant]
     Active Substance: TROSPIUM CHLORIDE
  7. QUETIAPINE FUMARATE. [Concomitant]
     Active Substance: QUETIAPINE FUMARATE
  8. METHADONE HCL [Concomitant]
     Active Substance: METHADONE HYDROCHLORIDE
  9. CYMBALTA [Concomitant]
     Active Substance: DULOXETINE HYDROCHLORIDE
  10. FLUOCINONIDE. [Concomitant]
     Active Substance: FLUOCINONIDE
  11. PROPRANOLOL [Concomitant]
     Active Substance: PROPRANOLOL HYDROCHLORIDE
  12. RIZATRIPTAN. [Concomitant]
     Active Substance: RIZATRIPTAN
  13. VITAMIN D3 [Concomitant]
     Active Substance: CHOLECALCIFEROL
  14. YASMIN [Concomitant]
     Active Substance: DROSPIRENONE\ETHINYL ESTRADIOL
  15. CALCIUM + VIT D [Concomitant]
     Active Substance: CALCIUM\VITAMIN D
  16. NUVIGIL [Concomitant]
     Active Substance: ARMODAFINIL
  17. CLONAZEPAM. [Concomitant]
     Active Substance: CLONAZEPAM
  18. LYRICA [Concomitant]
     Active Substance: PREGABALIN
  19. DENTA 5000 PLUS [Concomitant]
     Active Substance: SODIUM FLUORIDE
  20. DIFFERIN [Concomitant]
     Active Substance: ADAPALENE
  21. FENTORA [Concomitant]
     Active Substance: FENTANYL CITRATE
  22. METOPROLOL. [Concomitant]
     Active Substance: METOPROLOL
  23. DOCUSATE SODIUM. [Concomitant]
     Active Substance: DOCUSATE SODIUM
  24. XYREM [Suspect]
     Active Substance: SODIUM OXYBATE
     Dosage: DOSE ADJUSTMENT
     Route: 048
     Dates: start: 201506, end: 201801
  25. XYREM [Suspect]
     Active Substance: SODIUM OXYBATE
     Indication: CATAPLEXY
     Dosage: 2.25 G, BID
     Route: 048
     Dates: start: 201506, end: 201506
  26. XYREM [Suspect]
     Active Substance: SODIUM OXYBATE
     Dosage: 4.5 G, BID
     Route: 048
     Dates: start: 201801
  27. BISACODYL. [Concomitant]
     Active Substance: BISACODYL
  28. MAXALT-MLT [Concomitant]
     Active Substance: RIZATRIPTAN BENZOATE
  29. DIFLUPREDNATE [Concomitant]
     Active Substance: DIFLUPREDNATE
  30. SULFACETAMIDE W/SULFUR [Concomitant]
  31. TIZANIDINE HCL [Concomitant]
     Active Substance: TIZANIDINE HYDROCHLORIDE
  32. MIDODRINE [Concomitant]
     Active Substance: MIDODRINE
  33. XYREM [Suspect]
     Active Substance: SODIUM OXYBATE
     Indication: NARCOLEPSY
     Dosage: 4 G, BID
     Route: 048
     Dates: start: 200911, end: 200912
  34. GABAPENTIN. [Concomitant]
     Active Substance: GABAPENTIN
  35. MOVANTIK [Concomitant]
     Active Substance: NALOXEGOL OXALATE
  36. CHLORAL HYDRATE [Concomitant]
     Active Substance: CHLORAL HYDRATE
  37. GLICLAZIDE [Concomitant]
     Active Substance: GLICLAZIDE
  38. SENNA LAXATIVE [Concomitant]
     Active Substance: SENNOSIDES

REACTIONS (1)
  - Complex regional pain syndrome [Not Recovered/Not Resolved]
